FAERS Safety Report 25017719 (Version 2)
Quarter: 2025Q1

REPORT INFORMATION
  Report Type: Report from Study
  Country: CO (occurrence: CO)
  Receive Date: 20250227
  Receipt Date: 20250310
  Transmission Date: 20250408
  Serious: Yes (Death, Hospitalization, Other)
  Sender: UCB
  Company Number: CO-UCBSA-2025011054

PATIENT
  Age: 6 Year
  Sex: Female

DRUGS (4)
  1. LACOSAMIDE [Suspect]
     Active Substance: LACOSAMIDE
     Indication: Epilepsy
     Dosage: 3.5 MILLIGRAM, 2X/DAY (BID) (X1 EVERY 12 HOURS)
     Route: 048
     Dates: start: 20240923, end: 20241203
  2. LACOSAMIDE [Suspect]
     Active Substance: LACOSAMIDE
     Dosage: 7 MILLIGRAM, 2X/DAY (BID) (X1 EVERY 12 HOURS)
     Route: 048
     Dates: start: 20241204, end: 20250219
  3. MORPHINE [Concomitant]
     Active Substance: MORPHINE
     Indication: Accidental exposure to product
     Dates: start: 20250213, end: 20250213
  4. LEVETIRACETAM [Concomitant]
     Active Substance: LEVETIRACETAM
     Indication: Product used for unknown indication
     Dates: end: 20250219

REACTIONS (4)
  - Cardio-respiratory arrest [Fatal]
  - Depressed level of consciousness [Not Recovered/Not Resolved]
  - Accidental exposure to product by child [Unknown]
  - Accidental poisoning [Unknown]

NARRATIVE: CASE EVENT DATE: 20250213
